FAERS Safety Report 5670931-3 (Version None)
Quarter: 2008Q1

REPORT INFORMATION
  Report Type: 
  Country: None (occurrence: None)
  Receive Date: 20080318
  Receipt Date: 20080313
  Transmission Date: 20080703
  Serious: Yes (Death)
  Sender: FDA-Public Use
  Company Number: B0512601A

PATIENT
  Age: 47 Year
  Sex: Female

DRUGS (2)
  1. AMOXICILLIN [Suspect]
     Indication: INFECTION
     Dosage: 500MG PER DAY
     Route: 048
     Dates: start: 20020623, end: 20020623
  2. PREDNISOLONE [Concomitant]

REACTIONS (4)
  - ANAPHYLACTIC REACTION [None]
  - CARDIAC ARREST [None]
  - CYANOSIS [None]
  - PRURITUS [None]
